FAERS Safety Report 12559735 (Version 1)
Quarter: 2016Q3

REPORT INFORMATION
  Report Type: Spontaneous
  Country: US (occurrence: US)
  Receive Date: 20160715
  Receipt Date: 20160715
  Transmission Date: 20161109
  Serious: No
  Sender: FDA-Public Use
  Company Number: US-JNJFOC-20160624368

PATIENT
  Sex: Male

DRUGS (4)
  1. KENALOG [Concomitant]
     Active Substance: TRIAMCINOLONE ACETONIDE
     Indication: DERMATITIS CONTACT
     Dosage: GIVEN IN THE GLUTEOUS MAXIMUS
     Route: 065
  2. PEPCID [Suspect]
     Active Substance: FAMOTIDINE
     Indication: DERMATITIS CONTACT
     Route: 065
  3. CLARITIN [Concomitant]
     Active Substance: LORATADINE
     Indication: DERMATITIS CONTACT
     Dosage: DAILY
     Route: 065
  4. PEPCID [Suspect]
     Active Substance: FAMOTIDINE
     Route: 065

REACTIONS (2)
  - Off label use [Unknown]
  - Product use issue [Unknown]
